FAERS Safety Report 4561683-9 (Version None)
Quarter: 2005Q1

REPORT INFORMATION
  Report Type: 
  Country: None (occurrence: None)
  Receive Date: 20050124
  Receipt Date: 20050111
  Transmission Date: 20050727
  Serious: Yes (Other)
  Sender: FDA-Public Use
  Company Number: 2005010533

PATIENT
  Sex: Female

DRUGS (2)
  1. CELEBREX [Suspect]
     Indication: ILL-DEFINED DISORDER
  2. WARFARIN SODIUM [Concomitant]

REACTIONS (9)
  - ATRIAL FIBRILLATION [None]
  - DIFFICULTY IN WALKING [None]
  - DRUG INEFFECTIVE [None]
  - INSOMNIA [None]
  - INTERNATIONAL NORMALISED RATIO DECREASED [None]
  - KNEE ARTHROPLASTY [None]
  - SPINAL COLUMN STENOSIS [None]
  - THERAPY NON-RESPONDER [None]
  - WEIGHT INCREASED [None]
